FAERS Safety Report 21184714 (Version 1)
Quarter: 2022Q3

REPORT INFORMATION
  Report Type: Spontaneous
  Country: CA (occurrence: CA)
  Receive Date: 20220808
  Receipt Date: 20220808
  Transmission Date: 20221027
  Serious: Yes (Hospitalization)
  Sender: FDA-Public Use
  Company Number: None

PATIENT
  Age: 59 Year
  Sex: Female

DRUGS (2)
  1. TACROLIMUS [Suspect]
     Active Substance: TACROLIMUS
     Indication: Prophylaxis against graft versus host disease
     Dosage: 1 EVERY 1 DAYS
     Route: 042
  2. TACROLIMUS [Suspect]
     Active Substance: TACROLIMUS
     Indication: Prophylaxis against graft versus host disease
     Dosage: 1 EVERY 1 DAYS
     Route: 042

REACTIONS (4)
  - Chemotherapeutic drug level below therapeutic [Unknown]
  - Headache [Unknown]
  - Posterior reversible encephalopathy syndrome [Unknown]
  - Vision blurred [Unknown]
